FAERS Safety Report 13347158 (Version 1)
Quarter: 2017Q1

REPORT INFORMATION
  Report Type: Spontaneous
  Country: US (occurrence: US)
  Receive Date: 20170317
  Receipt Date: 20170317
  Transmission Date: 20170428
  Serious: Yes (Life-Threatening, Hospitalization, Other)
  Sender: FDA-Public Use
  Company Number: US-ASTRAZENECA-2016SE35258

PATIENT
  Age: 23262 Day
  Sex: Male
  Weight: 70.8 kg

DRUGS (8)
  1. BRILINTA [Suspect]
     Active Substance: TICAGRELOR
     Indication: ACUTE CORONARY SYNDROME
     Route: 048
     Dates: start: 20160327
  2. LOPRESSOR [Suspect]
     Active Substance: METOPROLOL TARTRATE
     Indication: CARDIAC DISORDER
     Dosage: GENERIC
     Route: 048
     Dates: start: 200004
  3. VASOTEC [Concomitant]
     Active Substance: ENALAPRIL MALEATE
     Dosage: GENERIC
     Route: 048
     Dates: start: 200004
  4. ASPIRIN. [Concomitant]
     Active Substance: ASPIRIN
     Indication: SUPPLEMENTATION THERAPY
     Route: 048
     Dates: start: 20160327
  5. VITAMIN D3 [Concomitant]
     Active Substance: CHOLECALCIFEROL
     Indication: SUPPLEMENTATION THERAPY
     Route: 048
     Dates: start: 201701
  6. SPIRONOLACTONE. [Concomitant]
     Active Substance: SPIRONOLACTONE
     Indication: DIURETIC THERAPY
     Route: 048
     Dates: start: 201701
  7. BRILINTA [Suspect]
     Active Substance: TICAGRELOR
     Indication: ANTICOAGULANT THERAPY
     Route: 048
     Dates: start: 20160327
  8. SPIRONOLACTONE. [Concomitant]
     Active Substance: SPIRONOLACTONE
     Indication: CARDIAC DISORDER
     Route: 048
     Dates: start: 201701

REACTIONS (8)
  - Osteomyelitis [Unknown]
  - Dysphonia [Unknown]
  - Cardiac arrest [Unknown]
  - Acute coronary syndrome [Unknown]
  - Stress [Unknown]
  - Epistaxis [Recovered/Resolved]
  - Anxiety [Unknown]
  - Dyspnoea [Unknown]

NARRATIVE: CASE EVENT DATE: 20160327
